FAERS Safety Report 7910227-X (Version None)
Quarter: 2011Q4

REPORT INFORMATION
  Report Type: 
  Country: None (occurrence: None)
  Receive Date: 20111111
  Receipt Date: 20111105
  Transmission Date: 20120403
  Serious: Yes (Other)
  Sender: FDA-Public Use
  Company Number: US-VERTEX PHARMACEUTICALS INC.-AE-2011-003203

PATIENT
  Age: 53 Year
  Sex: Female
  Weight: 84.444 kg

DRUGS (3)
  1. INCIVEK [Suspect]
     Indication: HEPATITIS C
     Route: 048
     Dates: start: 20111029
  2. RIBAVIRIN [Concomitant]
     Route: 048
     Dates: start: 20111029
  3. PEGASYS [Concomitant]
     Route: 058
     Dates: start: 20111029

REACTIONS (5)
  - PRURITUS [None]
  - URTICARIA [None]
  - RASH GENERALISED [None]
  - WEIGHT INCREASED [None]
  - BLISTER [None]
